FAERS Safety Report 11681722 (Version 2)
Quarter: 2015Q4

REPORT INFORMATION
  Report Type: Spontaneous
  Country: US (occurrence: US)
  Receive Date: 20151029
  Receipt Date: 20151204
  Transmission Date: 20160304
  Serious: Yes (Other)
  Sender: FDA-Public Use
  Company Number: US-BAYER-2015-449483

PATIENT
  Age: 22 Year
  Sex: Female

DRUGS (1)
  1. SKYLA [Suspect]
     Active Substance: LEVONORGESTREL
     Indication: CONTRACEPTION
     Dosage: 14 MCG/24HR, CONT
     Route: 015
     Dates: start: 20151019, end: 20151019

REACTIONS (6)
  - Procedural pain [None]
  - Loss of consciousness [Recovered/Resolved]
  - Abdominal pain upper [Recovered/Resolved]
  - Abdominal pain lower [Recovered/Resolved]
  - Complication of device insertion [Recovered/Resolved]
  - Dizziness [Recovered/Resolved]

NARRATIVE: CASE EVENT DATE: 20151019
